FAERS Safety Report 17917407 (Version 3)
Quarter: 2023Q1

REPORT INFORMATION
  Report Type: Spontaneous
  Country: US (occurrence: US)
  Receive Date: 20200619
  Receipt Date: 20230111
  Transmission Date: 20230417
  Serious: No
  Sender: FDA-Public Use
  Company Number: US-PFIZER INC-2017541020

PATIENT
  Sex: Female
  Weight: 56.7 kg

DRUGS (2)
  1. EFFEXOR XR [Suspect]
     Active Substance: VENLAFAXINE HYDROCHLORIDE
     Indication: Anxiety disorder
     Dosage: 150 MILLIGRAM, BID
     Route: 048
  2. EFFEXOR XR [Suspect]
     Active Substance: VENLAFAXINE HYDROCHLORIDE
     Dosage: 150 MILLIGRAM, QD (90 DAYS)
     Route: 048
     Dates: end: 20200612

REACTIONS (10)
  - Cognitive disorder [Unknown]
  - Bradyphrenia [Unknown]
  - Feeling abnormal [Unknown]
  - Mental disorder [Unknown]
  - Abnormal weight gain [Unknown]
  - Depression [Unknown]
  - Delusion [Unknown]
  - Insomnia [Unknown]
  - Constipation [Unknown]
  - Prescribed overdose [Unknown]
